FAERS Safety Report 7887994-7 (Version None)
Quarter: 2011Q4

REPORT INFORMATION
  Report Type: 
  Country: None (occurrence: None)
  Receive Date: 20111103
  Receipt Date: 20111028
  Transmission Date: 20120403
  Serious: Yes (Disabling)
  Sender: FDA-Public Use
  Company Number: DK-SANOFI-AVENTIS-2011SA069080

PATIENT
  Age: 62 Year
  Sex: Male
  Weight: 85 kg

DRUGS (6)
  1. SOLOSTAR [Suspect]
     Dates: end: 20111006
  2. GLIMEPIRIDE [Concomitant]
     Indication: DIABETES MELLITUS
     Dates: start: 20100222
  3. GLIMEPIRIDE [Concomitant]
     Dosage: INCREASED DOSE
  4. LANTUS [Suspect]
     Dosage: DOSE:75 UNIT(S)
     Route: 058
     Dates: end: 20111006
  5. LANTUS [Suspect]
     Indication: DIABETES MELLITUS
     Dosage: STYRKE: 100 E/ML. DOSIS: 75 IE 1 GANG DAGLIG. DOSE:75 UNIT(S)
     Route: 058
     Dates: start: 20110114, end: 20110928
  6. SOLOSTAR [Suspect]
     Indication: DEVICE THERAPY
     Dates: start: 20110114, end: 20110928

REACTIONS (1)
  - MYALGIA [None]
